FAERS Safety Report 6472622-8 (Version None)
Quarter: 2009Q4

REPORT INFORMATION
  Report Type: 
  Country: None (occurrence: None)
  Receive Date: 20091130
  Receipt Date: 20091109
  Transmission Date: 20100525
  Serious: Yes (Hospitalization)
  Sender: FDA-Public Use
  Company Number: 2009AL007174

PATIENT
  Age: 73 Year
  Sex: Female

DRUGS (5)
  1. FLUOXETINE [Suspect]
     Indication: DEPRESSION
     Dosage: 20 MG; QD;
  2. FENTANYL TRANSDERMAL SYSTEM, 25 MCG/HOUR (ASALLC) (FENTANYL TRANSDERMA [Suspect]
     Indication: PAIN MANAGEMENT
     Dosage: 25 UG; TDER
     Route: 062
  3. TRAMADOL HYDROCHLORIDE [Suspect]
     Dosage: 50 MG; Q8H;
  4. FEVERALL [Suspect]
     Indication: ANALGESIC THERAPY
     Dosage: 1 GM; Q8H;
  5. LINEZOLID [Concomitant]

REACTIONS (6)
  - DEVICE DISLOCATION [None]
  - ENTEROCOCCAL INFECTION [None]
  - ESCHERICHIA INFECTION [None]
  - HYPERTENSION [None]
  - OSTEOMYELITIS [None]
  - SEROTONIN SYNDROME [None]
